FAERS Safety Report 15745462 (Version 9)
Quarter: 2020Q2

REPORT INFORMATION
  Report Type: Spontaneous
  Country: US (occurrence: US)
  Receive Date: 20181220
  Receipt Date: 20200625
  Transmission Date: 20200713
  Serious: Yes (Other)
  Sender: FDA-Public Use
  Company Number: US-PFIZER INC-2016043897

PATIENT
  Age: 79 Year
  Sex: Female
  Weight: 84 kg

DRUGS (3)
  1. NORVASC [Suspect]
     Active Substance: AMLODIPINE BESYLATE
     Indication: HYPERTENSION
     Dosage: 10 MG, 1X/DAY
     Route: 048
  2. ESTRADIOL. [Concomitant]
     Active Substance: ESTRADIOL
     Dosage: UNK
  3. LEVOTHYROXINE. [Concomitant]
     Active Substance: LEVOTHYROXINE
     Dosage: UNK

REACTIONS (6)
  - Blindness unilateral [Unknown]
  - Retinal vein thrombosis [Unknown]
  - Drug hypersensitivity [Unknown]
  - Nerve injury [Unknown]
  - Macular degeneration [Not Recovered/Not Resolved]
  - Emotional disorder [Unknown]
